FAERS Safety Report 10572410 (Version 1)
Quarter: 2014Q4

REPORT INFORMATION
  Report Type: Spontaneous
  Country: US (occurrence: US)
  Receive Date: 20141109
  Receipt Date: 20141109
  Transmission Date: 20150529
  Serious: No
  Sender: FDA-Public Use
  Company Number: US-009507513-1411USA000827

PATIENT
  Age: 28 Year
  Sex: Female
  Weight: 90.7 kg

DRUGS (1)
  1. NEXPLANON [Suspect]
     Active Substance: ETONOGESTREL
     Indication: CONTRACEPTION
     Dosage: 68 MG, UNK
     Route: 059
     Dates: start: 20141021, end: 20141028

REACTIONS (4)
  - Medical device complication [Recovered/Resolved]
  - Implant site swelling [Unknown]
  - Implant site erythema [Unknown]
  - Implant site pustules [Unknown]

NARRATIVE: CASE EVENT DATE: 201410
